FAERS Safety Report 20892017 (Version 4)
Quarter: 2022Q3

REPORT INFORMATION
  Report Type: Spontaneous
  Country: IN (occurrence: IN)
  Receive Date: 20220530
  Receipt Date: 20220901
  Transmission Date: 20221027
  Serious: Yes (Other)
  Sender: FDA-Public Use
  Company Number: IN-PFIZER INC-202200767653

PATIENT
  Age: 31 Year
  Sex: Male

DRUGS (1)
  1. LORLATINIB [Suspect]
     Active Substance: LORLATINIB
     Indication: Non-small cell lung cancer metastatic
     Dosage: 100 MG, 1X/DAY
     Route: 048
     Dates: start: 20220514

REACTIONS (16)
  - Blood pressure increased [Unknown]
  - Heart rate increased [Unknown]
  - Gamma-glutamyltransferase increased [Unknown]
  - Headache [Unknown]
  - Cough [Unknown]
  - Alanine aminotransferase increased [Unknown]
  - White blood cell count increased [Unknown]
  - Neutrophil percentage increased [Unknown]
  - Red blood cell count decreased [Unknown]
  - Neutrophil count increased [Unknown]
  - Red cell distribution width increased [Unknown]
  - Weight decreased [Unknown]
  - Ataxia [Unknown]
  - Neoplasm progression [Unknown]
  - Body mass index increased [Unknown]
  - Tremor [Unknown]

NARRATIVE: CASE EVENT DATE: 20220520
